FAERS Safety Report 5509283-8 (Version None)
Quarter: 2007Q4

REPORT INFORMATION
  Report Type: 
  Country: None (occurrence: None)
  Receive Date: 20071107
  Receipt Date: 20071029
  Transmission Date: 20080405
  Serious: Yes (Hospitalization, Other)
  Sender: FDA-Public Use
  Company Number: 163-20785-07100624

PATIENT
  Age: 81 Year
  Sex: Male
  Weight: 67.586 kg

DRUGS (23)
  1. THALOMID [Suspect]
     Indication: PROSTATE CANCER
     Dosage: 100 MG, QD, ORAL
     Route: 048
     Dates: start: 20070910, end: 20071008
  2. DOXIL [Suspect]
     Indication: PROSTATE CANCER
     Dosage: 40 MG/M2, Q 28 DAYS, INTRAVENOUS
     Route: 042
     Dates: start: 20070930, end: 20071008
  3. DILAUDID [Concomitant]
  4. PREDNISONE [Concomitant]
  5. AVODART (DUSTASTERIDE) [Concomitant]
  6. DOXAZOSIN MESYLATE [Concomitant]
  7. FLOMAX [Concomitant]
  8. LESCOL [Concomitant]
  9. PROTONIX [Concomitant]
  10. LISINOPRIL [Concomitant]
  11. NIFEDIPINE ER XL (NIFEDIPINE) [Concomitant]
  12. AMOXICILLIN [Concomitant]
  13. FOSAMAX [Concomitant]
  14. COUMADIN [Concomitant]
  15. TAXOTERE [Concomitant]
  16. ALLEGRA (FEXOFENADINE HYDROCHLORIDE) [Concomitant]
  17. ANTIVERT (MECLOZINE HYDROCHLORIDE) [Concomitant]
  18. CASODEX [Concomitant]
  19. COMPAZINE [Concomitant]
  20. AREDIA [Concomitant]
  21. DEPO-LUPRON (LEUPRORELIN ACETATE) [Concomitant]
  22. GABAPENTIN [Concomitant]
  23. ASPIRIN [Concomitant]

REACTIONS (24)
  - ARTHRALGIA [None]
  - ATELECTASIS [None]
  - BLOOD ALKALINE PHOSPHATASE INCREASED [None]
  - DEHYDRATION [None]
  - DIZZINESS [None]
  - EPISTAXIS [None]
  - HAEMATOCRIT DECREASED [None]
  - HAEMOGLOBIN DECREASED [None]
  - INTERNATIONAL NORMALISED RATIO INCREASED [None]
  - JAUNDICE [None]
  - LEFT ATRIAL DILATATION [None]
  - MITRAL VALVE INCOMPETENCE [None]
  - NAUSEA [None]
  - NEUROPATHY [None]
  - OEDEMA PERIPHERAL [None]
  - ORTHOSTATIC HYPOTENSION [None]
  - PHARYNGOLARYNGEAL PAIN [None]
  - PLEURAL EFFUSION [None]
  - PNEUMONIA [None]
  - PULMONARY HYPERTENSION [None]
  - PYREXIA [None]
  - TRICUSPID VALVE INCOMPETENCE [None]
  - VERTIGO [None]
  - VOMITING [None]
